FAERS Safety Report 6529568 (Version 3)
Quarter: 2020Q3

REPORT INFORMATION
  Report Type: Report from Study
  Country: DE (occurrence: DE)
  Receive Date: 20080117
  Receipt Date: 20080811
  Transmission Date: 20201105
  Serious: Yes (Other)
  Sender: FDA-Public Use
  Company Number: DE-ROCHE-541055

PATIENT
  Age: 50 Year
  Sex: Female
  Weight: 79.7 kg

DRUGS (9)
  1. CAPECITABINE. [Suspect]
     Active Substance: CAPECITABINE
     Indication: BREAST CANCER
     Dosage: FREQUENCY REPORTED AS ^D 1?14, Q 22^. AS PER PROTOCOL, GIVEN ON DAYS 1?14 EVERY 22 DAYS FOR 4 CYCLE+
     Route: 048
     Dates: start: 20060412, end: 20060614
  2. TAXOL [Suspect]
     Active Substance: PACLITAXEL
     Indication: BREAST CANCER
     Dosage: FREQUENCY REPORTED AS ^Q8^. AS PER PROTOCOL GIVEN ON DAY 1, EVERY 8 DAYS FOR 10 CYCLES.
     Route: 042
     Dates: start: 20060412, end: 20060614
  3. CYCLOPHOSPHAMIDE. [Suspect]
     Active Substance: CYCLOPHOSPHAMIDE
     Indication: BREAST CANCER
     Route: 042
     Dates: start: 20060215, end: 20060329
  4. IBANDRONIC ACID. [Suspect]
     Active Substance: IBANDRONIC ACID
     Indication: PROPHYLAXIS
     Dosage: FREQUENCY REPORTED: QID
     Route: 048
     Dates: start: 200607, end: 20070806
  5. DILATREND [Concomitant]
     Active Substance: CARVEDILOL
     Route: 048
  6. EPOETIN BETA [Suspect]
     Active Substance: ERYTHROPOIETIN
     Indication: BREAST CANCER
     Dosage: 450IE/KG DAY 1 OF FIRST CHEMOTHERAPY CYCLE. TAKEN EVERY 7 DAYS THEREAFTER
     Route: 065
  7. EPIRUBICIN [Suspect]
     Active Substance: EPIRUBICIN
     Indication: BREAST CANCER
     Route: 042
     Dates: start: 20060215, end: 20060329
  8. TAMOXIFEN CITRATE. [Concomitant]
     Active Substance: TAMOXIFEN CITRATE
     Route: 048
     Dates: start: 200608
  9. COAPROVEL [Concomitant]
     Active Substance: HYDROCHLOROTHIAZIDE\IRBESARTAN
     Dosage: REPORTED AS CORAPROVEL.
     Route: 048

REACTIONS (1)
  - Osteonecrosis [Recovered/Resolved]

NARRATIVE: CASE EVENT DATE: 20071115
